FAERS Safety Report 9490365 (Version 2)
Quarter: 2013Q3

REPORT INFORMATION
  Report Type: Spontaneous
  Country: CG (occurrence: CG)
  Receive Date: 20130830
  Receipt Date: 20130912
  Transmission Date: 20140515
  Serious: Yes (Hospitalization, Other)
  Sender: FDA-Public Use
  Company Number: CG-009507513-1308COG011232

PATIENT
  Age: 29 Year
  Sex: Male

DRUGS (1)
  1. IVERMECTIN [Suspect]
     Indication: ONCHOCERCIASIS
     Dosage: 3 TABLETS, ONCE
     Route: 048
     Dates: start: 20120821, end: 20120821

REACTIONS (6)
  - Arthralgia [Recovered/Resolved]
  - Disorientation [Recovered/Resolved]
  - Headache [Recovered/Resolved]
  - Abnormal behaviour [Recovered/Resolved]
  - Pyrexia [Recovered/Resolved]
  - Toxic encephalopathy [Recovered/Resolved]
